FAERS Safety Report 7525613-X (Version None)
Quarter: 2011Q2

REPORT INFORMATION
  Report Type: 
  Country: None (occurrence: None)
  Receive Date: 20110606
  Receipt Date: 20110523
  Transmission Date: 20111010
  Serious: Yes (Other)
  Sender: FDA-Public Use
  Company Number: PHFR2011GB03237

PATIENT
  Sex: Male

DRUGS (3)
  1. LITHIUM CARBONATE [Concomitant]
     Dosage: 800 MG, UNK
  2. CLOZAPINE [Suspect]
     Indication: SCHIZOAFFECTIVE DISORDER
     Dosage: 200 MG, BID
  3. VALPROIC ACID [Concomitant]
     Dosage: 500 MG, QID

REACTIONS (5)
  - DRUG ABUSE [None]
  - ANTIPSYCHOTIC DRUG LEVEL INCREASED [None]
  - CONDITION AGGRAVATED [None]
  - INSOMNIA [None]
  - SCHIZOAFFECTIVE DISORDER [None]
